FAERS Safety Report 7571508-5 (Version None)
Quarter: 2011Q2

REPORT INFORMATION
  Report Type: 
  Country: None (occurrence: None)
  Receive Date: 20110624
  Receipt Date: 20110613
  Transmission Date: 20111010
  Serious: Yes (Life-Threatening, Hospitalization)
  Sender: FDA-Public Use
  Company Number: JP-JNJFOC-20110401565

PATIENT
  Sex: Female
  Weight: 56 kg

DRUGS (7)
  1. REMICADE [Suspect]
     Dosage: TOTAL 5 INFUSIONS
     Route: 042
     Dates: start: 20110307
  2. METHOTREXATE [Suspect]
     Indication: RHEUMATOID ARTHRITIS
     Route: 048
     Dates: start: 20100925, end: 20110330
  3. LEVOFLOXACIN [Concomitant]
     Dosage: 3 TABLETS TAKEN AS OF 01-APR-2011
     Route: 048
     Dates: start: 20110322, end: 20110401
  4. REMICADE [Suspect]
     Indication: RHEUMATOID ARTHRITIS
     Route: 042
     Dates: start: 20110207
  5. REMICADE [Suspect]
     Route: 042
     Dates: start: 20101122
  6. REMICADE [Suspect]
     Route: 042
     Dates: start: 20110106
  7. REMICADE [Suspect]
     Route: 042
     Dates: start: 20101206

REACTIONS (3)
  - PNEUMOCYSTIS JIROVECI PNEUMONIA [None]
  - CLOSTRIDIUM TEST POSITIVE [None]
  - INTERSTITIAL LUNG DISEASE [None]
